FAERS Safety Report 24838669 (Version 3)
Quarter: 2025Q2

REPORT INFORMATION
  Report Type: Report from Study
  Country: US (occurrence: US)
  Receive Date: 20250113
  Receipt Date: 20250507
  Transmission Date: 20250716
  Serious: Yes (Life-Threatening, Hospitalization, Disabling, Other)
  Sender: ABBVIE
  Company Number: US-ABBVIE-6040178

PATIENT
  Age: 57 Year
  Sex: Female

DRUGS (13)
  1. HUMIRA [Suspect]
     Active Substance: ADALIMUMAB
     Indication: Rheumatoid arthritis
     Dosage: INYECTOR
     Route: 058
  2. HUMIRA [Suspect]
     Active Substance: ADALIMUMAB
     Dosage: LAST ADMIN DATE 2024?INYECTOR
     Route: 058
     Dates: start: 202407
  3. HUMIRA [Suspect]
     Active Substance: ADALIMUMAB
     Dosage: INYECTOR
     Route: 058
     Dates: start: 2024, end: 2024
  4. WEGOVY [Suspect]
     Active Substance: SEMAGLUTIDE
     Indication: Product used for unknown indication
     Route: 065
  5. Bisoprolol fumarate and hydrochlorthiazide [Concomitant]
     Indication: Product used for unknown indication
  6. HYDROCHLOROTHIAZIDE\LOSARTAN POTASSIUM [Concomitant]
     Active Substance: HYDROCHLOROTHIAZIDE\LOSARTAN POTASSIUM
     Indication: Product used for unknown indication
  7. BUSPIRONE HYDROCHLORIDE [Concomitant]
     Active Substance: BUSPIRONE HYDROCHLORIDE
     Indication: Product used for unknown indication
  8. ATORVASTATIN CALCIUM [Concomitant]
     Active Substance: ATORVASTATIN CALCIUM
     Indication: Product used for unknown indication
  9. FOLIC ACID [Concomitant]
     Active Substance: FOLIC ACID
     Indication: Product used for unknown indication
  10. VITAMIN D [Concomitant]
     Active Substance: VITAMIN D NOS
     Indication: Product used for unknown indication
  11. FLONASE [Concomitant]
     Active Substance: FLUTICASONE PROPIONATE
     Indication: Product used for unknown indication
  12. SYMBICORT [Concomitant]
     Active Substance: BUDESONIDE\FORMOTEROL FUMARATE DIHYDRATE
     Indication: Product used for unknown indication
  13. CLARITIN REDITABS [Concomitant]
     Active Substance: LORATADINE
     Indication: Product used for unknown indication

REACTIONS (30)
  - Diarrhoea [Unknown]
  - Large intestinal obstruction [Unknown]
  - Hospitalisation [Unknown]
  - Hypersensitivity [Unknown]
  - Illness [Unknown]
  - Vomiting [Unknown]
  - Colitis [Unknown]
  - Headache [Unknown]
  - Systemic lupus erythematosus [Unknown]
  - Swollen tongue [Unknown]
  - Cough [Not Recovered/Not Resolved]
  - Colon cancer [Unknown]
  - Visual impairment [Unknown]
  - Arthralgia [Unknown]
  - Pain [Unknown]
  - Abdominal pain [Unknown]
  - Immunodeficiency [Unknown]
  - Asthma [Unknown]
  - Deep vein thrombosis [Unknown]
  - Dysuria [Unknown]
  - Joint swelling [Unknown]
  - General physical health deterioration [Unknown]
  - Eye inflammation [Unknown]
  - Fatigue [Unknown]
  - Eye disorder [Unknown]
  - Disability [Unknown]
  - Vascular occlusion [Unknown]
  - Gait inability [Unknown]
  - Musculoskeletal stiffness [Unknown]
  - Therapeutic product effect incomplete [Unknown]

NARRATIVE: CASE EVENT DATE: 20240101
